FAERS Safety Report 21189782 (Version 1)
Quarter: 2022Q3

REPORT INFORMATION
  Report Type: Spontaneous
  Country: US (occurrence: None)
  Receive Date: 20220808
  Receipt Date: 20220808
  Transmission Date: 20221027
  Serious: Yes (unspecified)
  Sender: FDA-Public Use
  Company Number: None

PATIENT
  Age: 32 Year
  Sex: Female
  Weight: 54.7 kg

DRUGS (2)
  1. OCRELIZUMAB [Suspect]
     Active Substance: OCRELIZUMAB
     Indication: Multiple sclerosis
     Dosage: FREQUENCY : ONCE;?
     Route: 041
     Dates: start: 20220804, end: 20220804
  2. METHYLPREDNISOLONE [Concomitant]
     Dates: start: 20220804, end: 20220804

REACTIONS (1)
  - Pruritus [None]

NARRATIVE: CASE EVENT DATE: 20220804
